FAERS Safety Report 15994704 (Version 1)
Quarter: 2019Q1

REPORT INFORMATION
  Report Type: Spontaneous
  Country: US (occurrence: US)
  Receive Date: 20190221
  Receipt Date: 20190221
  Transmission Date: 20190418
  Serious: Yes (Other)
  Sender: FDA-Public Use
  Company Number: None

PATIENT
  Age: 68 Year
  Sex: Female
  Weight: 68.4 kg

DRUGS (4)
  1. GEMFIBROZIL 600 MG TAB N/V [Suspect]
     Active Substance: GEMFIBROZIL
     Indication: BLOOD CHOLESTEROL INCREASED
     Dosage: ?          QUANTITY:1 TABLET(S);?
     Route: 048
     Dates: start: 20190215, end: 20190216
  2. IBUPROPHEN [Concomitant]
     Active Substance: IBUPROFEN
  3. VITAMIN D3 [Concomitant]
     Active Substance: CHOLECALCIFEROL
  4. CYCLOBENZAPR [Concomitant]
     Active Substance: CYCLOBENZAPRINE

REACTIONS (5)
  - Depression [None]
  - Oesophageal pain [None]
  - Feeding disorder [None]
  - Urticaria [None]
  - Irritability [None]

NARRATIVE: CASE EVENT DATE: 20190216
